FAERS Safety Report 9772090 (Version 1)
Quarter: 2013Q4

REPORT INFORMATION
  Report Type: Spontaneous
  Country: US (occurrence: None)
  Receive Date: 20131218
  Receipt Date: 20131218
  Transmission Date: 20140711
  Serious: No
  Sender: FDA-Public Use
  Company Number: None

PATIENT
  Age: 70 Year
  Sex: Female
  Weight: 76.2 kg

DRUGS (1)
  1. MONTELUKAST SODIUM 10MG [Suspect]
     Indication: MULTIPLE ALLERGIES
     Dosage: TAKEN BY MOUTH, AT BEDTIME

REACTIONS (3)
  - Cough [None]
  - Drug ineffective [None]
  - Product substitution issue [None]
